APPROVED DRUG PRODUCT: AMBIEN
Active Ingredient: ZOLPIDEM TARTRATE
Strength: 10MG
Dosage Form/Route: TABLET;ORAL
Application: N019908 | Product #002 | TE Code: AB
Applicant: COSETTE PHARMACEUTICALS INC
Approved: Dec 16, 1992 | RLD: Yes | RS: Yes | Type: RX